FAERS Safety Report 16043287 (Version 5)
Quarter: 2019Q3

REPORT INFORMATION
  Report Type: Report from Study
  Country: NL (occurrence: NL)
  Receive Date: 20190306
  Receipt Date: 20190805
  Transmission Date: 20191004
  Serious: Yes (Other)
  Sender: FDA-Public Use
  Company Number: NL-EXELIXIS-XL18419019188

PATIENT
  Age: 69 Year
  Sex: Male
  Weight: 82.8 kg

DRUGS (5)
  1. CALCIUM CHOLECALCIFEROL BERES [Concomitant]
  2. XL184 [Suspect]
     Active Substance: CABOZANTINIB
     Indication: TRANSITIONAL CELL CARCINOMA
     Dosage: 40 MG, QD
     Route: 048
     Dates: start: 20181206
  3. ATEZOLIZUMAB. [Suspect]
     Active Substance: ATEZOLIZUMAB
     Indication: TRANSITIONAL CELL CARCINOMA
     Dosage: 1200 MG, Q3WEEKS
     Route: 042
     Dates: start: 20181206
  4. MOVICOLON [Concomitant]
     Active Substance: POLYETHYLENE GLYCOL 3350\POTASSIUM CHLORIDE\SODIUM BICARBONATE\SODIUM CHLORIDE
  5. PARACETAMOL [Concomitant]
     Active Substance: ACETAMINOPHEN

REACTIONS (1)
  - Autoimmune hepatitis [Recovered/Resolved]

NARRATIVE: CASE EVENT DATE: 20190228
